FAERS Safety Report 6504417-0 (Version None)
Quarter: 2009Q4

REPORT INFORMATION
  Report Type: 
  Country: None (occurrence: None)
  Receive Date: 20091217
  Receipt Date: 20091207
  Transmission Date: 20100525
  Serious: Yes (Hospitalization, Other)
  Sender: FDA-Public Use
  Company Number: CA-ABBOTT-09P-028-0613047-00

PATIENT
  Sex: Female
  Weight: 88.53 kg

DRUGS (8)
  1. HUMIRA [Suspect]
     Indication: RHEUMATOID ARTHRITIS
     Route: 058
     Dates: start: 20081212, end: 20090924
  2. FRAGMIN [Suspect]
     Indication: DRUG USE FOR UNKNOWN INDICATION
     Route: 050
     Dates: end: 20091127
  3. HYDROCHLOROTHIAZIDE [Concomitant]
     Indication: DRUG USE FOR UNKNOWN INDICATION
  4. PREDNISONE TAB [Concomitant]
     Indication: DRUG USE FOR UNKNOWN INDICATION
  5. ARTHROTEC [Concomitant]
     Indication: DRUG USE FOR UNKNOWN INDICATION
  6. ARTHROTEC [Concomitant]
  7. FOSAMAX PLUS D [Suspect]
     Indication: DRUG USE FOR UNKNOWN INDICATION
  8. CALCIUM [Concomitant]
     Indication: DRUG USE FOR UNKNOWN INDICATION

REACTIONS (5)
  - ARTHRALGIA [None]
  - INJECTION SITE HAEMATOMA [None]
  - JOINT STIFFNESS [None]
  - MAMMOGRAM ABNORMAL [None]
  - OSTEOARTHRITIS [None]
